FAERS Safety Report 9706034 (Version 2)
Quarter: 2013Q4

REPORT INFORMATION
  Report Type: Report from Study
  Country: NL (occurrence: NL)
  Receive Date: 20131122
  Receipt Date: 20131217
  Transmission Date: 20140711
  Serious: Yes (Hospitalization)
  Sender: FDA-Public Use
  Company Number: NL-EXELIXIS-XL18413003664

PATIENT
  Age: 85 Year
  Sex: Male
  Weight: 75.4 kg

DRUGS (13)
  1. XL184 [Suspect]
     Indication: PROSTATE CANCER
     Dosage: 60 MG, QD
     Route: 048
     Dates: start: 20130702, end: 2013
  2. XL184 [Suspect]
     Dosage: 20 MG, QD
     Route: 048
     Dates: start: 2013, end: 20131107
  3. XL184 [Suspect]
     Dosage: 20 MG, QD
     Route: 048
     Dates: start: 20131112
  4. XL184 [Suspect]
     Indication: PROSTATE CANCER
     Dosage: 5 MG, BID
     Route: 048
     Dates: start: 20130702, end: 20131107
  5. XL184 [Suspect]
     Dosage: 5 MG, BID
     Route: 048
     Dates: start: 20131112
  6. GOSERELIN [Concomitant]
  7. ALENDRONIC ACID [Concomitant]
  8. CALCICHEW D3 [Concomitant]
  9. NEXIUM [Concomitant]
  10. PARACETAMOL [Concomitant]
  11. DOXAZOSINE [Concomitant]
  12. PREDNISONE [Concomitant]
  13. VENLAFAXINE [Concomitant]

REACTIONS (1)
  - Urinary retention [Recovered/Resolved]
